FAERS Safety Report 12875742 (Version 1)
Quarter: 2016Q4

REPORT INFORMATION
  Report Type: Other
  Country: CN (occurrence: CN)
  Receive Date: 20161024
  Receipt Date: 20161024
  Transmission Date: 20170207
  Serious: Yes (Hospitalization)
  Sender: FDA-Public Use
  Company Number: CN-LUPIN PHARMACEUTICALS INC.-2016-04743

PATIENT
  Age: 48 Year
  Sex: Female

DRUGS (2)
  1. DOXYCYCLINE. [Suspect]
     Active Substance: DOXYCYCLINE
     Indication: BRUCELLOSIS
     Route: 065
     Dates: end: 20151108
  2. RIFAMPICIN [Concomitant]
     Active Substance: RIFAMPIN
     Indication: BRUCELLOSIS
     Route: 065

REACTIONS (1)
  - Pyrexia [Recovered/Resolved]
